FAERS Safety Report 10219206 (Version 3)
Quarter: 2014Q3

REPORT INFORMATION
  Report Type: Other
  Country: SE (occurrence: SE)
  Receive Date: 20140605
  Receipt Date: 20140701
  Transmission Date: 20150326
  Serious: Yes (Other)
  Sender: FDA-Public Use
  Company Number: SE-ASTELLAS-2014EU005321

PATIENT
  Age: 55 Year
  Sex: Female
  Weight: 57 kg

DRUGS (2)
  1. BETMIGA [Suspect]
     Active Substance: MIRABEGRON
     Indication: URGE INCONTINENCE
  2. BETMIGA [Suspect]
     Active Substance: MIRABEGRON
     Indication: HYPERTONIC BLADDER
     Dosage: UNK UNK, ONCE DAILY
     Route: 048
     Dates: start: 201403, end: 20140505

REACTIONS (27)
  - Abdominal distension [Not Recovered/Not Resolved]
  - Chest pain [Unknown]
  - Arthralgia [Not Recovered/Not Resolved]
  - Arthritis [Not Recovered/Not Resolved]
  - Dyspnoea [Not Recovered/Not Resolved]
  - Rhinorrhoea [Unknown]
  - Dyspnoea [Unknown]
  - Aspartate aminotransferase increased [Unknown]
  - Alanine aminotransferase increased [Unknown]
  - Eye pruritus [Not Recovered/Not Resolved]
  - Blood cholesterol increased [Unknown]
  - Ocular hyperaemia [Not Recovered/Not Resolved]
  - Peripheral swelling [Not Recovered/Not Resolved]
  - Sinus headache [Not Recovered/Not Resolved]
  - Palpitations [Unknown]
  - Eye irritation [Not Recovered/Not Resolved]
  - Generalised oedema [Unknown]
  - Weight increased [Not Recovered/Not Resolved]
  - Fatigue [Unknown]
  - Contusion [Unknown]
  - Cervicobrachial syndrome [Unknown]
  - Lumbar hernia [Unknown]
  - Swelling [Not Recovered/Not Resolved]
  - Eye pain [Unknown]
  - Dizziness [Unknown]
  - Pain [Unknown]
  - Urinary incontinence [Unknown]

NARRATIVE: CASE EVENT DATE: 201403
